FAERS Safety Report 11400563 (Version 1)
Quarter: 2015Q3

REPORT INFORMATION
  Report Type: Spontaneous
  Country: US (occurrence: US)
  Receive Date: 20150820
  Receipt Date: 20150820
  Transmission Date: 20151125
  Serious: Yes (Other)
  Sender: FDA-Public Use
  Company Number: US-PFIZER INC-2015274979

PATIENT
  Age: 70 Year
  Sex: Female

DRUGS (4)
  1. EXEMESTANE. [Suspect]
     Active Substance: EXEMESTANE
     Dosage: UNK UNK, 1X/DAY
     Route: 048
     Dates: start: 201404, end: 201504
  2. MINOCYCLINE [Suspect]
     Active Substance: MINOCYCLINE\MINOCYCLINE HYDROCHLORIDE
     Dosage: UNK
     Route: 048
     Dates: end: 201504
  3. CLINDAMYCIN PHOSPHATE. [Suspect]
     Active Substance: CLINDAMYCIN PHOSPHATE
     Dosage: UNK
     Route: 061
     Dates: end: 201504
  4. SULFACID [Suspect]
     Active Substance: SULFACETAMIDE SODIUM
     Dosage: UNK
     Route: 061
     Dates: end: 201504

REACTIONS (7)
  - Furuncle [Recovering/Resolving]
  - Social avoidant behaviour [Unknown]
  - Haematochezia [Recovered/Resolved]
  - Condition aggravated [Unknown]
  - Pain [Unknown]
  - Rosacea [Unknown]
  - Depression [Unknown]
